FAERS Safety Report 24128080 (Version 1)
Quarter: 2024Q3

REPORT INFORMATION
  Report Type: Spontaneous
  Country: JP (occurrence: JP)
  Receive Date: 20240723
  Receipt Date: 20240723
  Transmission Date: 20241017
  Serious: Yes (Other)
  Sender: EXELIXIS
  Company Number: JP-TAKEDA-2024TJP010649

PATIENT
  Age: 6 Decade

DRUGS (1)
  1. CABOMETYX [Suspect]
     Active Substance: CABOZANTINIB S-MALATE
     Indication: Product used for unknown indication
     Dosage: UNK
     Route: 048

REACTIONS (3)
  - Sarcoidosis [Unknown]
  - Palmar-plantar erythrodysaesthesia syndrome [Unknown]
  - Decreased appetite [Unknown]
